FAERS Safety Report 21617162 (Version 1)
Quarter: 2022Q4

REPORT INFORMATION
  Report Type: Report from Study
  Country: US (occurrence: US)
  Receive Date: 20221118
  Receipt Date: 20221118
  Transmission Date: 20230113
  Serious: Yes (Hospitalization)
  Sender: FDA-Public Use
  Company Number: US-SEATTLE GENETICS-2022SGN09577

PATIENT
  Age: 28 Year
  Sex: Female
  Weight: 56 kg

DRUGS (14)
  1. BRENTUXIMAB VEDOTIN [Suspect]
     Active Substance: BRENTUXIMAB VEDOTIN
     Indication: Primary mediastinal large B-cell lymphoma
     Dosage: 90 MG IN SODIUM CHLORIDE 0.9% (NS) 100 ML IVPB (8 OF 8 CYCLES)
     Route: 042
     Dates: start: 20220122, end: 20220610
  2. NIVOLUMAB [Suspect]
     Active Substance: NIVOLUMAB
     Indication: Primary mediastinal large B-cell lymphoma
     Dosage: 240 MG IN SODIUM CHLORIDE 0.9% (NS) 50 ML IVPB (7 OF 7 CYCLES)
     Route: 042
     Dates: start: 20220122, end: 20220610
  3. RITUXIMAB [Suspect]
     Active Substance: RITUXIMAB
     Indication: Primary mediastinal large B-cell lymphoma
     Dosage: 600 MG IN SODIUM CHLORIDE 0.9% (NS) 600 ML IVPB (STANDARD INFUSION) (4 OF 4 CYCLES)
     Route: 042
     Dates: start: 20220122
  4. CYCLOPHOSPHAMIDE [Suspect]
     Active Substance: CYCLOPHOSPHAMIDE
     Indication: Primary mediastinal large B-cell lymphoma
     Dosage: 1132.5 MG IN SODIUM CHLORIDE 0.9% (NS) 250 ML IVPB (4 OF 4 CYCLES)
     Route: 042
     Dates: start: 20220122, end: 20220610
  5. DOXORUBICIN [Suspect]
     Active Substance: DOXORUBICIN
     Indication: Primary mediastinal large B-cell lymphoma
     Route: 065
  6. PREDNISONE [Suspect]
     Active Substance: PREDNISONE
     Indication: Primary mediastinal large B-cell lymphoma
     Route: 065
  7. LORAZEPAM [Concomitant]
     Active Substance: LORAZEPAM
     Indication: Anxiety
     Dosage: 1 MG, Q8HR AS NEEDED, TAKE 30 MINUTES PRIOR TO CT SCAN
     Route: 048
  8. NORETHINDRONE ACETATE AND ETHINYL ESTRADIOL [Concomitant]
     Active Substance: ETHINYL ESTRADIOL\NORETHINDRONE ACETATE
     Dosage: 1-20 MG-MCG PER TABLET, TAKE 1 DAILY
     Route: 048
  9. ONDANSETRON [Concomitant]
     Active Substance: ONDANSETRON
     Indication: Nausea
     Dosage: 8 MG, Q8HR AS NEEDED, TAKE 1 TO 2 DAYS AFTER CHEMO COMPLETE
     Route: 048
  10. ONDANSETRON [Concomitant]
     Active Substance: ONDANSETRON
     Indication: Vomiting
  11. OXYCODONE [Concomitant]
     Active Substance: OXYCODONE
     Indication: Pain
     Dosage: 5 MG EVERY 12 HOURS AS NEEDED FOR UP TO 20 DOSES
     Route: 048
  12. OXYCODONE [Concomitant]
     Active Substance: OXYCODONE
     Dosage: 5 MG EVERY 6 HOURS AS NEEDED
     Route: 048
  13. PANTOPRAZOLE [Concomitant]
     Active Substance: PANTOPRAZOLE
     Dosage: 40 MG, QD WITH BREAKFAST
     Route: 048
  14. VALACYCLOVIR HYDROCHLORIDE [Concomitant]
     Active Substance: VALACYCLOVIR HYDROCHLORIDE
     Dosage: 500 MG, QD
     Route: 048

REACTIONS (1)
  - Colitis [Recovered/Resolved]

NARRATIVE: CASE EVENT DATE: 20220913
